FAERS Safety Report 16528867 (Version 1)
Quarter: 2019Q3

REPORT INFORMATION
  Report Type: Spontaneous
  Country: BR (occurrence: BR)
  Receive Date: 20190703
  Receipt Date: 20190703
  Transmission Date: 20191004
  Serious: Yes (Death, Other)
  Sender: FDA-Public Use
  Company Number: BR-CELGENEUS-BRA-20190611613

PATIENT
  Age: 73 Year
  Sex: Male

DRUGS (1)
  1. VIDAZA [Suspect]
     Active Substance: AZACITIDINE
     Indication: MYELODYSPLASTIC SYNDROME
     Dosage: 100 MILLIGRAM
     Route: 058
     Dates: start: 201606

REACTIONS (3)
  - Intestinal mass [Unknown]
  - Hypotension [Recovered/Resolved]
  - Haemorrhage [Fatal]

NARRATIVE: CASE EVENT DATE: 2019
